FAERS Safety Report 7037411-4 (Version None)
Quarter: 2010Q4

REPORT INFORMATION
  Report Type: 
  Country: None (occurrence: None)
  Receive Date: 20101011
  Receipt Date: 20100930
  Transmission Date: 20110411
  Serious: Yes (Other)
  Sender: FDA-Public Use
  Company Number: US-PFIZER INC-2010124863

PATIENT
  Sex: Male

DRUGS (1)
  1. ZOLOFT [Suspect]
     Dosage: 100 MG, UNK

REACTIONS (5)
  - ASTHENIA [None]
  - FEAR [None]
  - FEELING ABNORMAL [None]
  - PSYCHOMOTOR SKILLS IMPAIRED [None]
  - TREMOR [None]
